FAERS Safety Report 22294447 (Version 1)
Quarter: 2023Q2

REPORT INFORMATION
  Report Type: Spontaneous
  Country: US (occurrence: US)
  Receive Date: 20230508
  Receipt Date: 20230508
  Transmission Date: 20230722
  Serious: No
  Sender: FDA-Public Use
  Company Number: US-ASTELLAS-2022US025048

PATIENT
  Age: 82 Year
  Sex: Female

DRUGS (4)
  1. LEXISCAN [Suspect]
     Active Substance: REGADENOSON
     Indication: Product used for unknown indication
     Dosage: UNK, OTHER (ONCE) (ONE DOSE FOR TEST)
     Route: 065
  2. LEXISCAN [Suspect]
     Active Substance: REGADENOSON
     Indication: Product used for unknown indication
     Dosage: UNK, OTHER (ONCE) (ONE DOSE FOR TEST)
     Route: 065
  3. LEXISCAN [Suspect]
     Active Substance: REGADENOSON
     Indication: Product used for unknown indication
     Dosage: UNK, OTHER (ONCE) (ONE DOSE FOR TEST)
     Route: 065
  4. LEXISCAN [Suspect]
     Active Substance: REGADENOSON
     Indication: Product used for unknown indication
     Dosage: UNK, OTHER (ONCE) (ONE DOSE FOR TEST)
     Route: 065

REACTIONS (2)
  - Sneezing [Recovered/Resolved]
  - Heart rate increased [Recovered/Resolved]
